FAERS Safety Report 7734083-8 (Version None)
Quarter: 2011Q3

REPORT INFORMATION
  Report Type: 
  Country: None (occurrence: None)
  Receive Date: 20110901
  Receipt Date: 20110829
  Transmission Date: 20111222
  Serious: Yes (Hospitalization)
  Sender: FDA-Public Use
  Company Number: 2011S1001237

PATIENT
  Sex: Male

DRUGS (1)
  1. LIVALO [Suspect]
     Dosage: 2 MG;PO
     Route: 048

REACTIONS (1)
  - GRAND MAL CONVULSION [None]
